FAERS Safety Report 11552219 (Version 1)
Quarter: 2015Q3

REPORT INFORMATION
  Report Type: Spontaneous
  Country: DK (occurrence: None)
  Receive Date: 20150923
  Receipt Date: 20150923
  Transmission Date: 20151125
  Serious: No
  Sender: FDA-Public Use
  Company Number: DK-2015-3884

PATIENT
  Age: 69 Year
  Sex: Female
  Weight: 77 kg

DRUGS (7)
  1. AVASTIN [Suspect]
     Active Substance: BEVACIZUMAB
     Indication: LUNG NEOPLASM MALIGNANT
     Dosage: CYCLICAL (1/21)
     Route: 042
     Dates: start: 20141212, end: 20150515
  2. CARBOPLATIN (CARBOPLATIN) UNKNOWN [Suspect]
     Active Substance: CARBOPLATIN
     Indication: LUNG NEOPLASM MALIGNANT
     Route: 042
     Dates: start: 20141212, end: 20150304
  3. LOSARTAN (LOSARTAN POTASSIUM) [Concomitant]
  4. NOSCAPINE (NOSCAPINE HYDROCHLORIDE) [Concomitant]
  5. ZOPICLONE [Concomitant]
     Active Substance: ZOPICLONE
  6. VINORELBINE [Suspect]
     Active Substance: VINORELBINE\VINORELBINE TARTRATE
     Indication: LUNG NEOPLASM MALIGNANT
     Route: 048
     Dates: start: 20141212, end: 20150304
  7. PINEX (PARACETAMOL) [Concomitant]

REACTIONS (1)
  - Lymphadenopathy [None]

NARRATIVE: CASE EVENT DATE: 20150318
